FAERS Safety Report 15791795 (Version 1)
Quarter: 2019Q1

REPORT INFORMATION
  Report Type: Spontaneous
  Country: US (occurrence: US)
  Receive Date: 20190105
  Receipt Date: 20190105
  Transmission Date: 20190417
  Serious: No
  Sender: FDA-Public Use
  Company Number: US-TEVA-2018-US-988918

PATIENT
  Sex: Female

DRUGS (1)
  1. FENTANYL TEVA [Suspect]
     Active Substance: FENTANYL
     Route: 062
     Dates: start: 201812

REACTIONS (3)
  - Product dispensing issue [Unknown]
  - Product adhesion issue [Unknown]
  - Recalled product [Unknown]

NARRATIVE: CASE EVENT DATE: 201812
